FAERS Safety Report 7290411-1 (Version None)
Quarter: 2011Q1

REPORT INFORMATION
  Report Type: 
  Country: None (occurrence: None)
  Receive Date: 20110214
  Receipt Date: 20110204
  Transmission Date: 20110831
  Serious: Yes (Other)
  Sender: FDA-Public Use
  Company Number: US-EISAI INC-E3810-04448-SPO-US

PATIENT
  Sex: Female
  Weight: 67 kg

DRUGS (1)
  1. ACIPHEX [Suspect]
     Route: 048
     Dates: start: 20010101

REACTIONS (5)
  - THYROID DISORDER [None]
  - POLYP [None]
  - FEELING ABNORMAL [None]
  - DIVERTICULITIS [None]
  - ABDOMINAL DISCOMFORT [None]
